FAERS Safety Report 13552092 (Version 3)
Quarter: 2017Q2

REPORT INFORMATION
  Report Type: Report from Study
  Country: US (occurrence: US)
  Receive Date: 20170516
  Receipt Date: 20170623
  Transmission Date: 20170830
  Serious: Yes (Other)
  Sender: FDA-Public Use
  Company Number: US-GILEAD-2017-0255927

PATIENT
  Age: 60 Year
  Sex: Male
  Weight: 157.73 kg

DRUGS (4)
  1. BACTRIM DS [Suspect]
     Active Substance: SULFAMETHOXAZOLE\TRIMETHOPRIM
     Indication: PERIPHERAL SWELLING
  2. IDELALISIB [Suspect]
     Active Substance: IDELALISIB
     Indication: B-CELL LYMPHOMA
  3. BACTRIM DS [Suspect]
     Active Substance: SULFAMETHOXAZOLE\TRIMETHOPRIM
     Indication: COUGH
     Dosage: UNK
     Route: 065
     Dates: start: 20170207, end: 201705
  4. IDELALISIB [Suspect]
     Active Substance: IDELALISIB
     Indication: NON-HODGKIN^S LYMPHOMA
     Dosage: 150 MG, BID
     Route: 048
     Dates: start: 201612, end: 20170514

REACTIONS (12)
  - Positron emission tomogram abnormal [Unknown]
  - Rash pruritic [Recovering/Resolving]
  - Pyelocaliectasis [Unknown]
  - B-cell lymphoma [Not Recovered/Not Resolved]
  - Disease progression [Unknown]
  - Blood creatinine increased [Recovering/Resolving]
  - Fluid overload [Unknown]
  - Weight increased [Unknown]
  - Lower respiratory tract congestion [Recovering/Resolving]
  - Fatigue [Not Recovered/Not Resolved]
  - Lymphoma transformation [Not Recovered/Not Resolved]
  - Eosinophilic cellulitis [Recovering/Resolving]

NARRATIVE: CASE EVENT DATE: 2017
